FAERS Safety Report 4286699-1 (Version None)
Quarter: 2004Q1

REPORT INFORMATION
  Report Type: 
  Country: None (occurrence: None)
  Receive Date: 20040204
  Receipt Date: 20040119
  Transmission Date: 20041129
  Serious: Yes (Other)
  Sender: FDA-Public Use
  Company Number: 2004-UK-00046UK (0)

PATIENT
  Age: 74 Year
  Sex: Female

DRUGS (12)
  1. SPIRIVA [Suspect]
     Indication: CHRONIC OBSTRUCTIVE AIRWAYS DISEASE
     Dosage: 1 ANZ, IH
     Route: 055
     Dates: start: 20030801, end: 20030909
  2. AMLODIPINE BESYLATE [Concomitant]
  3. CROTAMITON (CROTAMITON) [Concomitant]
  4. PARACETAMOL (PARACETAMOL) [Concomitant]
  5. TRIPTAFEN (ETRAFON-D) [Concomitant]
  6. TRAMADOL (TRAMADOL) [Concomitant]
  7. DIDRONEL PMO (TA) [Concomitant]
  8. BECLOMETHASONE DIPROPIONATE [Concomitant]
  9. RANITIDINE [Concomitant]
  10. KETOPROFEN [Concomitant]
  11. CO-PHENOTROPE (LOMOTIL) [Concomitant]
  12. CACIT (CACIT) [Concomitant]

REACTIONS (1)
  - DEPRESSION [None]
